FAERS Safety Report 8409616-9 (Version None)
Quarter: 2012Q2

REPORT INFORMATION
  Report Type: 
  Country: None (occurrence: None)
  Receive Date: 20120531
  Receipt Date: 20120531
  Transmission Date: 20120825
  Serious: Yes (Other)
  Sender: FDA-Public Use
  Company Number: None

PATIENT
  Sex: Male
  Weight: 104.3273 kg

DRUGS (1)
  1. METFORMIN HYDROCHLORIDE [Suspect]
     Indication: DIABETES MELLITUS
     Dosage: 500 MG 2 TABLETS TWICE/DAY ORAL
     Route: 048
     Dates: start: 20120504, end: 20120515

REACTIONS (2)
  - PRODUCT SOLUBILITY ABNORMAL [None]
  - DIABETES MELLITUS INADEQUATE CONTROL [None]
